FAERS Safety Report 8613472-3 (Version None)
Quarter: 2012Q3

REPORT INFORMATION
  Report Type: 
  Country: None (occurrence: None)
  Receive Date: 20120823
  Receipt Date: 20120807
  Transmission Date: 20120928
  Serious: Yes (Hospitalization, Other)
  Sender: FDA-Public Use
  Company Number: US-009507513-0706USA03718

PATIENT

DRUGS (3)
  1. FOSAMAX [Suspect]
     Indication: OSTEOPOROSIS
     Dosage: 70 MG, QW
     Route: 048
     Dates: start: 20030101
  2. AUGMENTIN '500' [Concomitant]
  3. ZOLOFT [Concomitant]
     Indication: DEPRESSION

REACTIONS (25)
  - SUICIDAL IDEATION [None]
  - SINUSITIS [None]
  - PALPITATIONS [None]
  - TEMPOROMANDIBULAR JOINT SYNDROME [None]
  - SINUS POLYP [None]
  - LIPOMA [None]
  - DISTURBANCE IN ATTENTION [None]
  - TENSION [None]
  - SUBCUTANEOUS ABSCESS [None]
  - NEOPLASM [None]
  - AMNESIA [None]
  - BLOOD PRESSURE INCREASED [None]
  - HEADACHE [None]
  - TOOTH LOSS [None]
  - PANIC ATTACK [None]
  - CYST [None]
  - ANXIETY [None]
  - MAJOR DEPRESSION [None]
  - DIVERTICULITIS [None]
  - ABSCESS ORAL [None]
  - PAIN [None]
  - GAIT DISTURBANCE [None]
  - DIZZINESS [None]
  - WEIGHT INCREASED [None]
  - TOOTH FRACTURE [None]
